FAERS Safety Report 18417676 (Version 1)
Quarter: 2020Q4

REPORT INFORMATION
  Report Type: Spontaneous
  Country: US (occurrence: US)
  Receive Date: 20201022
  Receipt Date: 20201022
  Transmission Date: 20210114
  Serious: No
  Sender: FDA-Public Use
  Company Number: US-SEATTLE GENETICS-2020SGN03554

PATIENT
  Sex: Female

DRUGS (2)
  1. CAPECITABINE. [Suspect]
     Active Substance: CAPECITABINE
     Indication: BREAST CANCER FEMALE
     Dosage: 1000MG IN THE MORNING AND 1000MG IN THE EVENING
     Dates: start: 20200910
  2. TUKYSA [Suspect]
     Active Substance: TUCATINIB
     Indication: BREAST CANCER FEMALE
     Dosage: UNK UNK, BID

REACTIONS (17)
  - Lip pain [Unknown]
  - Faeces pale [Unknown]
  - Abdominal pain upper [Unknown]
  - Erythema [Unknown]
  - Diarrhoea [Unknown]
  - Lip blister [Unknown]
  - Sinusitis [Unknown]
  - Dry mouth [Unknown]
  - Neuropathy peripheral [Unknown]
  - Vomiting [Unknown]
  - Blood count abnormal [Unknown]
  - Platelet count decreased [Recovering/Resolving]
  - Hepatic enzyme increased [Unknown]
  - Muscle spasms [Unknown]
  - Skin discolouration [Unknown]
  - Nausea [Unknown]
  - Product dose omission issue [Unknown]
